FAERS Safety Report 7611324-9 (Version None)
Quarter: 2011Q3

REPORT INFORMATION
  Report Type: 
  Country: None (occurrence: None)
  Receive Date: 20110715
  Receipt Date: 20110616
  Transmission Date: 20111222
  Serious: No
  Sender: FDA-Public Use
  Company Number: US-BAYER-2011-053141

PATIENT
  Age: 61 Year
  Sex: Male
  Weight: 110 kg

DRUGS (4)
  1. TRIAMCINOLONE [Concomitant]
  2. OMEPRAZOLE [Concomitant]
  3. MULTI-VITAMIN [Concomitant]
  4. ALEVE (CAPLET) [Suspect]
     Indication: ARTHRITIS
     Dosage: 3 DF, QD
     Route: 048
     Dates: start: 20110601

REACTIONS (1)
  - RASH [None]
